FAERS Safety Report 19623920 (Version 2)
Quarter: 2021Q4

REPORT INFORMATION
  Report Type: Spontaneous
  Country: AT (occurrence: AT)
  Receive Date: 20210728
  Receipt Date: 20211223
  Transmission Date: 20220303
  Serious: Yes (Other)
  Sender: FDA-Public Use
  Company Number: AT-MYLANLABS-2021M1045889

PATIENT
  Sex: Female

DRUGS (7)
  1. TOBRAMYCIN [Suspect]
     Active Substance: TOBRAMYCIN
     Indication: Pseudomonas infection
     Dosage: NEBULISED
  2. TOBRAMYCIN [Suspect]
     Active Substance: TOBRAMYCIN
     Indication: Pseudomonas infection
     Dosage: UNK
     Route: 042
  3. COLISTIN SULFATE [Suspect]
     Active Substance: COLISTIN SULFATE
     Indication: Pseudomonas infection
     Dosage: NEBULISED
  4. COLISTIN SULFATE [Concomitant]
     Active Substance: COLISTIN SULFATE
     Indication: Pseudomonas infection
     Dosage: UNK
     Route: 042
  5. CIPROFLOXACIN [Concomitant]
     Active Substance: CIPROFLOXACIN
     Indication: Pseudomonas infection
     Dosage: UNK
     Route: 065
  6. CEFTAZIDIME [Concomitant]
     Active Substance: CEFTAZIDIME
     Indication: Pseudomonas infection
     Dosage: UNK
     Route: 042
  7. FLUCLOXACILLIN [Concomitant]
     Active Substance: FLUCLOXACILLIN
     Indication: Pseudomonas infection
     Dosage: UNK
     Route: 042

REACTIONS (2)
  - Bronchial hyperreactivity [Unknown]
  - Pathogen resistance [Unknown]
